FAERS Safety Report 17679038 (Version 2)
Quarter: 2020Q2

REPORT INFORMATION
  Report Type: Spontaneous
  Country: US (occurrence: US)
  Receive Date: 20200417
  Receipt Date: 20200602
  Transmission Date: 20200714
  Serious: No
  Sender: FDA-Public Use
  Company Number: US-ASTRAZENECA-2020SE49232

PATIENT
  Age: 23517 Day
  Sex: Male
  Weight: 100.2 kg

DRUGS (6)
  1. VITAMINS [Concomitant]
     Active Substance: VITAMINS
  2. LISINOPRIL. [Concomitant]
     Active Substance: LISINOPRIL
     Dosage: 2.5
  3. HUMALOG [Concomitant]
     Active Substance: INSULIN LISPRO
  4. BYDUREON BCISE [Suspect]
     Active Substance: EXENATIDE
     Indication: TYPE 2 DIABETES MELLITUS
     Route: 058
     Dates: start: 20190905
  5. BYDUREON BCISE [Suspect]
     Active Substance: EXENATIDE
     Indication: TYPE 2 DIABETES MELLITUS
     Route: 058
  6. LANTUS [Concomitant]
     Active Substance: INSULIN GLARGINE

REACTIONS (9)
  - Drug ineffective [Unknown]
  - Wrong technique in device usage process [Unknown]
  - Pain in extremity [Recovered/Resolved]
  - Myalgia [Unknown]
  - Injection site bruising [Unknown]
  - Injection site mass [Unknown]
  - Pain [Unknown]
  - Injection site pain [Unknown]
  - Product dose omission [Unknown]

NARRATIVE: CASE EVENT DATE: 20190705
